FAERS Safety Report 5870191-4 (Version None)
Quarter: 2008Q3

REPORT INFORMATION
  Report Type: 
  Country: None (occurrence: None)
  Receive Date: 20080904
  Receipt Date: 20080827
  Transmission Date: 20090109
  Serious: Yes (Other)
  Sender: FDA-Public Use
  Company Number: PHEH2008US07628

PATIENT
  Sex: Female

DRUGS (1)
  1. EXFORGE [Suspect]
     Dosage: 10/160 MG

REACTIONS (3)
  - ASTHENIA [None]
  - RENAL IMPAIRMENT [None]
  - WEIGHT DECREASED [None]
